FAERS Safety Report 20419252 (Version 8)
Quarter: 2022Q1

REPORT INFORMATION
  Report Type: Spontaneous
  Country: JP (occurrence: JP)
  Receive Date: 20220203
  Receipt Date: 20220314
  Transmission Date: 20220423
  Serious: Yes (Other)
  Sender: FDA-Public Use
  Company Number: JP-BRISTOL-MYERS SQUIBB COMPANY-BMS-2022-014707

PATIENT
  Age: 73 Year
  Sex: Female

DRUGS (6)
  1. YERVOY [Suspect]
     Active Substance: IPILIMUMAB
     Indication: Non-small cell lung cancer
     Dosage: 1 MILLIGRAM/KILOGRAM, Q6WK
     Route: 041
  2. OPDIVO [Suspect]
     Active Substance: NIVOLUMAB
     Indication: Non-small cell lung cancer
     Dosage: 360 MILLIGRAM, Q3WK
     Route: 041
  3. BARACLUDE [Suspect]
     Active Substance: ENTECAVIR
     Indication: Viral hepatitis carrier
     Dosage: UNK
     Route: 065
  4. CARBOPLATIN [Suspect]
     Active Substance: CARBOPLATIN
     Indication: Non-small cell lung cancer
     Dosage: AUC 6
     Route: 065
  5. PACLITAXEL [Suspect]
     Active Substance: PACLITAXEL
     Indication: Non-small cell lung cancer
     Dosage: 200 MILLIGRAM/SQ. METER
     Route: 065
  6. PACLITAXEL [Suspect]
     Active Substance: PACLITAXEL
     Dosage: 160 MILLIGRAM/SQ. METER
     Route: 065

REACTIONS (4)
  - Inappropriate antidiuretic hormone secretion [Unknown]
  - Neutrophil count decreased [Unknown]
  - Hypoaesthesia [Unknown]
  - Purpura [Unknown]
